FAERS Safety Report 6457538-5 (Version None)
Quarter: 2009Q4

REPORT INFORMATION
  Report Type: 
  Country: None (occurrence: None)
  Receive Date: 20091120
  Receipt Date: 20091106
  Transmission Date: 20100525
  Serious: Yes (Death, Hospitalization)
  Sender: FDA-Public Use
  Company Number: 2009003421

PATIENT
  Age: 73 Year
  Sex: Male

DRUGS (1)
  1. TARCEVA [Suspect]
     Indication: LUNG CARCINOMA CELL TYPE UNSPECIFIED RECURRENT
     Dosage: (150) MG, QD), ORAL
     Route: 048
     Dates: start: 20090721, end: 20090909

REACTIONS (4)
  - ABDOMINAL PAIN [None]
  - DYSPNOEA [None]
  - HYPERPYREXIA [None]
  - NAUSEA [None]
